FAERS Safety Report 6398015-X (Version None)
Quarter: 2009Q4

REPORT INFORMATION
  Report Type: 
  Country: None (occurrence: None)
  Receive Date: 20091013
  Receipt Date: 20090917
  Transmission Date: 20100525
  Serious: No
  Sender: FDA-Public Use
  Company Number: US-ROCHE-657770

PATIENT
  Sex: Male

DRUGS (1)
  1. TAMIFLU [Suspect]
     Route: 065

REACTIONS (2)
  - INCORRECT STORAGE OF DRUG [None]
  - MALAISE [None]
